FAERS Safety Report 19490089 (Version 1)
Quarter: 2021Q3

REPORT INFORMATION
  Report Type: Spontaneous
  Country: US (occurrence: US)
  Receive Date: 20210705
  Receipt Date: 20210705
  Transmission Date: 20211014
  Serious: Yes (Hospitalization, Other)
  Sender: FDA-Public Use
  Company Number: US-HIKMA PHARMACEUTICALS USA INC.-US-H14001-21-02983

PATIENT
  Age: 61 Year
  Sex: Female
  Weight: 109.03 kg

DRUGS (1)
  1. PREDNISONE. [Suspect]
     Active Substance: PREDNISONE
     Indication: CHRONIC GRAFT VERSUS HOST DISEASE
     Route: 048
     Dates: start: 20210527

REACTIONS (5)
  - Hyperglycaemia [Recovered/Resolved]
  - Vision blurred [Recovered/Resolved]
  - Pollakiuria [Recovered/Resolved]
  - Blood lactic acid increased [Unknown]
  - Thirst [Recovered/Resolved]

NARRATIVE: CASE EVENT DATE: 20210531
